FAERS Safety Report 4322617-5 (Version None)
Quarter: 2004Q1

REPORT INFORMATION
  Report Type: 
  Country: None (occurrence: None)
  Receive Date: 20040324
  Receipt Date: 20040315
  Transmission Date: 20041129
  Serious: Yes (Hospitalization)
  Sender: FDA-Public Use
  Company Number: WAES 0403FRA00050

PATIENT
  Age: 8 Year
  Sex: Female
  Weight: 40 kg

DRUGS (4)
  1. ALBENDAZOLE [Suspect]
     Indication: TOXOCARIASIS
     Route: 048
     Dates: start: 19950707, end: 19950715
  2. FLUBENDAZOLE [Concomitant]
     Indication: TOXOCARIASIS
  3. STROMECTOL [Suspect]
     Indication: TOXOCARIASIS
     Route: 048
     Dates: start: 19950501, end: 19950601
  4. MINTEZOL [Suspect]
     Indication: TOXOCARIASIS
     Route: 048
     Dates: start: 19950401, end: 19950410

REACTIONS (2)
  - EOSINOPHILIA [None]
  - OPTIC NEURITIS RETROBULBAR [None]
